FAERS Safety Report 16255143 (Version 3)
Quarter: 2019Q2

REPORT INFORMATION
  Report Type: Report from Study
  Country: US (occurrence: US)
  Receive Date: 20190430
  Receipt Date: 20190508
  Transmission Date: 20190711
  Serious: Yes (Hospitalization)
  Sender: FDA-Public Use
  Company Number: US-IPSEN BIOPHARMACEUTICALS, INC.-2019-06936

PATIENT
  Age: 70 Year
  Sex: Female
  Weight: 49 kg

DRUGS (9)
  1. TAS-102 [Suspect]
     Active Substance: TIPIRACIL HYDROCHLORIDE\TRIFLURIDINE
     Indication: PANCREATIC CARCINOMA
     Dosage: 1-5.COMPLETED ONE CYCLE ON 30/MAR/2019
     Route: 048
     Dates: start: 20190325
  2. ONIVYDE [Suspect]
     Active Substance: IRINOTECAN HYDROCHLORIDE
     Indication: PANCREATIC CARCINOMA
     Dosage: COMPLETED ONE CYCLE ON 25-MAR-2019.
     Route: 042
     Dates: start: 20190325
  3. CREON [Concomitant]
     Active Substance: PANCRELIPASE AMYLASE\PANCRELIPASE LIPASE\PANCRELIPASE PROTEASE
  4. NYSTATIN. [Concomitant]
     Active Substance: NYSTATIN
  5. PANTOPRAZOLE [Concomitant]
     Active Substance: PANTOPRAZOLE
  6. IRINOTECAN HYDROCHLORIDE. [Suspect]
     Active Substance: IRINOTECAN HYDROCHLORIDE
     Indication: PANCREATIC CARCINOMA
     Route: 042
     Dates: start: 20190325
  7. HYDROCHLOROQUINE [Concomitant]
     Active Substance: HYDROXYCHLOROQUINE SULFATE
  8. CEVIMELINE. [Concomitant]
     Active Substance: CEVIMELINE
  9. LACTULOSE. [Concomitant]
     Active Substance: LACTULOSE

REACTIONS (4)
  - Cytopenia [Unknown]
  - Dehydration [Unknown]
  - Confusional state [Recovered/Resolved]
  - Mental disorder [Unknown]

NARRATIVE: CASE EVENT DATE: 20190407
